FAERS Safety Report 6116788-8 (Version None)
Quarter: 2009Q1

REPORT INFORMATION
  Report Type: 
  Country: None (occurrence: None)
  Receive Date: 20090314
  Receipt Date: 20081231
  Transmission Date: 20090719
  Serious: No
  Sender: FDA-Public Use
  Company Number: US-ABBOTT-08P-163-0494961-00

PATIENT
  Sex: Male

DRUGS (2)
  1. HUMIRA [Suspect]
     Indication: UVEITIS
     Route: 058
     Dates: start: 20081001
  2. HUMIRA [Suspect]
     Indication: JUVENILE ARTHRITIS

REACTIONS (2)
  - LOWER RESPIRATORY TRACT INFECTION [None]
  - WHEEZING [None]
